FAERS Safety Report 18736319 (Version 3)
Quarter: 2021Q1

REPORT INFORMATION
  Report Type: Spontaneous
  Country: US (occurrence: US)
  Receive Date: 20210113
  Receipt Date: 20210211
  Transmission Date: 20210419
  Serious: No
  Sender: FDA-Public Use
  Company Number: US-PFIZER INC-2021017413

PATIENT
  Age: 72 Year

DRUGS (2)
  1. PREMARIN [Suspect]
     Active Substance: ESTROGENS, CONJUGATED
     Indication: URGE INCONTINENCE
     Dosage: 1 G, 3X/WEEK
     Route: 067
  2. TOVIAZ [Suspect]
     Active Substance: FESOTERODINE FUMARATE
     Indication: URGE INCONTINENCE
     Dosage: 4 MG, 1X/DAY
     Route: 048

REACTIONS (2)
  - Mental status changes [Unknown]
  - Off label use [Unknown]
